FAERS Safety Report 6874723-9 (Version None)
Quarter: 2010Q3

REPORT INFORMATION
  Report Type: 
  Country: None (occurrence: None)
  Receive Date: 20100723
  Receipt Date: 20100713
  Transmission Date: 20110219
  Serious: Yes (Hospitalization)
  Sender: FDA-Public Use
  Company Number: 2010MA000851

PATIENT
  Age: 58 Year
  Sex: Female

DRUGS (3)
  1. FEVERALL [Suspect]
     Indication: PRODUCT USED FOR UNKNOWN INDICATION
     Dosage: 1 GM;QID;PO
     Route: 054
  2. ACETAMINOPHEN AND CODEINE PHOSPHATE [Suspect]
     Indication: BACK PAIN
     Dosage: 1 DF; BID; PO
     Route: 048
     Dates: start: 20070127, end: 20070128
  3. LEVOTHYROXINE SODIUM (CON.) [Concomitant]

REACTIONS (3)
  - AGITATION [None]
  - DRY MOUTH [None]
  - THIRST [None]
